FAERS Safety Report 14753556 (Version 3)
Quarter: 2018Q2

REPORT INFORMATION
  Report Type: Spontaneous
  Country: CA (occurrence: CA)
  Receive Date: 20180412
  Receipt Date: 20180619
  Transmission Date: 20180711
  Serious: Yes (Hospitalization, Other)
  Sender: FDA-Public Use
  Company Number: CA-PFIZER INC-2018137315

PATIENT
  Age: 56 Year
  Sex: Female

DRUGS (16)
  1. PREDNISONE. [Concomitant]
     Active Substance: PREDNISONE
     Dosage: 50 MG, 2X/DAY
  2. BUSCOPAN [Concomitant]
     Active Substance: BUTYLSCOPOLAMINE BROMIDE
     Dosage: 10 MG, EVERY 4 HRS
     Route: 048
  3. PENTASA [Concomitant]
     Active Substance: MESALAMINE
     Dosage: 2000 MG, 2X/DAY
     Route: 048
     Dates: start: 201802
  4. SOLU-MEDROL [Suspect]
     Active Substance: METHYLPREDNISOLONE SODIUM SUCCINATE
     Indication: COLITIS ULCERATIVE
     Dosage: 30 MG, 2X/DAY
     Route: 042
     Dates: start: 20180326
  5. ZOFRAN [Concomitant]
     Active Substance: ONDANSETRON HYDROCHLORIDE
     Dosage: 8 MG, CYCLIC (EVERY 6 HOURS)
     Route: 048
  6. VITAMIN D /00107901/ [Concomitant]
     Active Substance: ERGOCALCIFEROL
     Dosage: 2000 IU, DAILY
  7. FLAGYL [Concomitant]
     Active Substance: METRONIDAZOLE\METRONIDAZOLE HYDROCHLORIDE
     Dosage: 500 MG, 3X/DAY
     Route: 048
     Dates: start: 20180317, end: 20180322
  8. CALCIUM [Concomitant]
     Active Substance: CALCIUM
     Dosage: UNK
  9. PREDNISONE. [Concomitant]
     Active Substance: PREDNISONE
     Dosage: 50 MG, DAILY (FOR 3 DAYS)
     Route: 048
  10. SOLU-MEDROL [Suspect]
     Active Substance: METHYLPREDNISOLONE SODIUM SUCCINATE
     Indication: COLITIS
     Dosage: 30 MG, 2X/DAY
     Route: 042
     Dates: start: 20180314, end: 20180319
  11. CIPROFLOXACIN /00697202/ [Concomitant]
     Active Substance: CIPROFLOXACIN HYDROCHLORIDE
     Dosage: 500 MG, 2X/DAY
     Dates: start: 20180311, end: 20180322
  12. FLAGYL [Concomitant]
     Active Substance: METRONIDAZOLE\METRONIDAZOLE HYDROCHLORIDE
     Dosage: 500 MG, 3X/DAY
     Route: 042
     Dates: start: 20180314
  13. CIPROFLOXACIN /00697202/ [Concomitant]
     Active Substance: CIPROFLOXACIN HYDROCHLORIDE
     Dosage: 30 MG, 2X/DAY
     Route: 042
     Dates: start: 20180311, end: 20180322
  14. DALTEPARIN /01708302/ [Concomitant]
     Dosage: UNK
  15. POTASSIUM /00031402/ [Concomitant]
     Active Substance: POTASSIUM
     Dosage: 2 G, 2X/DAY
  16. ONDANSETRON /00955302/ [Concomitant]
     Dosage: 4 MG, CYCLIC (EVERY 6 HOURS AS NEEDED)
     Route: 048

REACTIONS (4)
  - Decreased appetite [Unknown]
  - Colitis ulcerative [Unknown]
  - Condition aggravated [Unknown]
  - Postmenopausal haemorrhage [Unknown]
